FAERS Safety Report 5865538-9 (Version None)
Quarter: 2008Q3

REPORT INFORMATION
  Report Type: 
  Country: None (occurrence: None)
  Receive Date: 20080829
  Receipt Date: 20080806
  Transmission Date: 20090109
  Serious: No
  Sender: FDA-Public Use
  Company Number: US-ABBOTT-08P-163-0469129-00

PATIENT
  Sex: Female

DRUGS (10)
  1. SIMCOR [Suspect]
     Indication: DRUG USE FOR UNKNOWN INDICATION
     Dosage: 500/20
     Dates: start: 20080716
  2. GENUVIA [Concomitant]
     Indication: DRUG USE FOR UNKNOWN INDICATION
  3. DUOTAC 30 [Concomitant]
     Indication: DRUG USE FOR UNKNOWN INDICATION
  4. ACETYLSALICYLIC ACID SRT [Concomitant]
     Indication: DRUG USE FOR UNKNOWN INDICATION
  5. ENALAPRIL MALEATE [Concomitant]
     Indication: DRUG USE FOR UNKNOWN INDICATION
  6. CARVEDILOL [Concomitant]
     Indication: DRUG USE FOR UNKNOWN INDICATION
  7. SOLIFENACIN [Concomitant]
     Indication: DRUG USE FOR UNKNOWN INDICATION
  8. ALDACTANE [Concomitant]
     Indication: DRUG USE FOR UNKNOWN INDICATION
  9. TRAMADOL HCL [Concomitant]
     Indication: DRUG USE FOR UNKNOWN INDICATION
  10. AMOLODIPINE [Concomitant]
     Indication: DRUG USE FOR UNKNOWN INDICATION

REACTIONS (3)
  - FEELING HOT [None]
  - PALPITATIONS [None]
  - PRURITUS [None]
